FAERS Safety Report 25177169 (Version 1)
Quarter: 2025Q2

REPORT INFORMATION
  Report Type: Report from Study
  Country: ZA (occurrence: ZA)
  Receive Date: 20250409
  Receipt Date: 20250409
  Transmission Date: 20250717
  Serious: Yes (Other)
  Sender: BIOVITRUM
  Company Number: ZA-AstraZeneca-CH-00839510A

PATIENT
  Sex: Male
  Weight: 5.5 kg

DRUGS (1)
  1. PALIVIZUMAB [Suspect]
     Active Substance: PALIVIZUMAB
     Indication: Respiratory syncytial virus bronchiolitis
     Route: 030

REACTIONS (1)
  - Illness [Unknown]
